FAERS Safety Report 9984432 (Version 1)
Quarter: 2014Q1

REPORT INFORMATION
  Report Type: Report from Study
  Country: US (occurrence: US)
  Receive Date: 20140307
  Receipt Date: 20140307
  Transmission Date: 20141002
  Serious: No
  Sender: FDA-Public Use
  Company Number: US-ABBVIE-13P-163-1182973-00

PATIENT
  Sex: Female
  Weight: 51.3 kg

DRUGS (7)
  1. HUMIRA [Suspect]
     Indication: CROHN^S DISEASE
     Route: 058
     Dates: start: 201102, end: 201102
  2. HUMIRA [Suspect]
     Dosage: TWO WEEKS AFTER THE 160MG DOSE
     Route: 058
     Dates: start: 2011, end: 2011
  3. HUMIRA [Suspect]
     Dosage: TWO WEEKS AFTER 80 MG DOSE
     Route: 058
     Dates: start: 2011
  4. LISINOPRIL [Concomitant]
     Indication: HYPERTENSION
  5. VITAMIN D3 [Concomitant]
     Indication: VITAMIN SUPPLEMENTATION
  6. MULTIVITAMIN [Concomitant]
     Indication: VITAMIN SUPPLEMENTATION
  7. VITAMIN B-12 [Concomitant]
     Indication: VITAMIN SUPPLEMENTATION
     Dates: start: 2003

REACTIONS (1)
  - Osteoporosis [Not Recovered/Not Resolved]
